FAERS Safety Report 5658200-9 (Version None)
Quarter: 2008Q1

REPORT INFORMATION
  Report Type: 
  Country: None (occurrence: None)
  Receive Date: 20080310
  Receipt Date: 20070105
  Transmission Date: 20080703
  Serious: No
  Sender: FDA-Public Use
  Company Number: US-BAYER-200710058BCC

PATIENT
  Age: 72 Year
  Sex: Female
  Weight: 86 kg

DRUGS (4)
  1. ALEVE [Suspect]
     Indication: ARTHRALGIA
     Dosage: AS USED: 660 MG  UNIT DOSE: 220 MG
     Route: 048
     Dates: start: 20070104, end: 20070105
  2. NEXIUM [Concomitant]
  3. PREDNISONE TAB [Concomitant]
  4. ALBUTEROL [Concomitant]

REACTIONS (1)
  - ABDOMINAL PAIN UPPER [None]
